FAERS Safety Report 10994713 (Version 3)
Quarter: 2016Q2

REPORT INFORMATION
  Report Type: Spontaneous
  Country: US (occurrence: US)
  Receive Date: 20150407
  Receipt Date: 20160426
  Transmission Date: 20160815
  Serious: No
  Sender: FDA-Public Use
  Company Number: US-JNJFOC-20150402482

PATIENT
  Age: 8 Year
  Sex: Male

DRUGS (4)
  1. RISPERDAL [Suspect]
     Active Substance: RISPERIDONE
     Indication: ATTENTION DEFICIT/HYPERACTIVITY DISORDER
     Route: 048
     Dates: start: 20061208, end: 20071206
  2. RISPERDAL [Suspect]
     Active Substance: RISPERIDONE
     Indication: ANGER
     Route: 048
     Dates: start: 20061208, end: 20071206
  3. RISPERDAL [Suspect]
     Active Substance: RISPERIDONE
     Indication: ATTENTION DEFICIT/HYPERACTIVITY DISORDER
     Route: 048
     Dates: start: 20061208, end: 20071206
  4. RISPERDAL [Suspect]
     Active Substance: RISPERIDONE
     Indication: ANGER
     Route: 048
     Dates: start: 20061208, end: 20071206

REACTIONS (4)
  - Gynaecomastia [Not Recovered/Not Resolved]
  - Off label use [Unknown]
  - Product use issue [Recovering/Resolving]
  - Abnormal weight gain [Not Recovered/Not Resolved]

NARRATIVE: CASE EVENT DATE: 20061205
